FAERS Safety Report 4744198-4 (Version None)
Quarter: 2005Q3

REPORT INFORMATION
  Report Type: 
  Country: None (occurrence: None)
  Receive Date: 20050810
  Receipt Date: 20050810
  Transmission Date: 20060218
  Serious: Yes (Hospitalization)
  Sender: FDA-Public Use
  Company Number: None

PATIENT
  Sex: Female

DRUGS (7)
  1. ZD1839 [Suspect]
     Indication: RENAL CELL CARCINOMA STAGE UNSPECIFIED
     Dosage: 250 MG QD
     Dates: start: 20500712, end: 20050729
  2. PEG INTERFERON ALFA 2B2 [Suspect]
     Indication: RENAL CELL CARCINOMA STAGE UNSPECIFIED
     Dosage: 6.0 MG/KG/WEEK SQ
     Route: 058
     Dates: start: 20050712, end: 20050729
  3. BENZEPRIL [Concomitant]
  4. PLETAL [Concomitant]
  5. MEGACE [Concomitant]
  6. INSULIN [Concomitant]
  7. AMLODIPINE [Concomitant]

REACTIONS (4)
  - ANOREXIA [None]
  - DRUG TOXICITY [None]
  - FATIGUE [None]
  - RENAL FAILURE ACUTE [None]
